FAERS Safety Report 4759969-8 (Version None)
Quarter: 2005Q3

REPORT INFORMATION
  Report Type: 
  Country: None (occurrence: None)
  Receive Date: 20050831
  Receipt Date: 20050822
  Transmission Date: 20060218
  Serious: Yes (Other)
  Sender: FDA-Public Use
  Company Number: 2005119364

PATIENT
  Age: 21 Year
  Sex: Female
  Weight: 58.9676 kg

DRUGS (3)
  1. DEMULEN 1/35-21 [Suspect]
     Indication: SKIN DISORDER
     Dates: start: 20050724
  2. KLONOPIN [Concomitant]
  3. PROZAC [Concomitant]

REACTIONS (11)
  - ACNE [None]
  - ANXIETY [None]
  - DERMAL CYST [None]
  - DYSMENORRHOEA [None]
  - HAEMORRHAGIC CYST [None]
  - HYPERSOMNIA [None]
  - METRORRHAGIA [None]
  - OBSESSIVE-COMPULSIVE DISORDER [None]
  - PHARMACEUTICAL PRODUCT COMPLAINT [None]
  - POOR QUALITY DRUG ADMINISTERED [None]
  - VAGINAL CYST [None]
